FAERS Safety Report 6014217-6 (Version None)
Quarter: 2008Q4

REPORT INFORMATION
  Report Type: 
  Country: None (occurrence: None)
  Receive Date: 20081219
  Receipt Date: 20080303
  Transmission Date: 20090506
  Serious: No
  Sender: FDA-Public Use
  Company Number: A0710549A

PATIENT
  Age: 69 Year
  Sex: Male

DRUGS (9)
  1. AVODART [Suspect]
     Indication: BENIGN PROSTATIC HYPERPLASIA
     Dosage: .5MG PER DAY
     Route: 048
     Dates: start: 20070822
  2. UROXATRAL [Concomitant]
  3. GEMFIBROZIL [Concomitant]
  4. IBUPROFEN [Concomitant]
  5. CLORAZEPATE DIPOTASSIUM [Concomitant]
  6. HYDROCHLOROTHIAZIDE [Concomitant]
  7. METOPROLOL TARTRATE [Concomitant]
  8. ALLOPURINOL [Concomitant]
  9. PROTOPIC [Concomitant]

REACTIONS (1)
  - BREAST ENLARGEMENT [None]
